FAERS Safety Report 6272462-9 (Version None)
Quarter: 2009Q3

REPORT INFORMATION
  Report Type: 
  Country: None (occurrence: None)
  Receive Date: 20090713
  Receipt Date: 20090414
  Transmission Date: 20100115
  Serious: Yes (Other)
  Sender: FDA-Public Use
  Company Number: 627484

PATIENT
  Age: 74 Year
  Sex: Female

DRUGS (5)
  1. BONIVA [Suspect]
     Indication: OSTEOPOROSIS
     Dates: start: 20080101
  2. AMOXICILLIN [Concomitant]
  3. ISONIAZID [Concomitant]
  4. COZAAR [Concomitant]
  5. AROMASIN [Concomitant]

REACTIONS (3)
  - ARTHRALGIA [None]
  - BLOOD CHOLESTEROL ABNORMAL [None]
  - WRONG TECHNIQUE IN DRUG USAGE PROCESS [None]
